FAERS Safety Report 19976835 (Version 1)
Quarter: 2021Q4

REPORT INFORMATION
  Report Type: Spontaneous
  Country: US (occurrence: US)
  Receive Date: 20211020
  Receipt Date: 20211020
  Transmission Date: 20220303
  Serious: No
  Sender: FDA-Public Use
  Company Number: US-NESTLEHEALTHSCIENCE-2021000042

PATIENT
  Age: 83 Year
  Sex: Female

DRUGS (4)
  1. ZENPEP [Suspect]
     Active Substance: PANCRELIPASE AMYLASE\PANCRELIPASE LIPASE\PANCRELIPASE PROTEASE
     Dosage: ONE 40,000 USP CAPSULE 15 MINS BEFORE MEALS, HAVE TO HAVE BEFORE MEALS , 15 MIN BEFORE
     Route: 048
     Dates: start: 20210505, end: 20210505
  2. GABAPENTIN [Concomitant]
     Active Substance: GABAPENTIN
     Dosage: UNKNOWN
     Route: 065
  3. VITAMIN B12 [Concomitant]
     Active Substance: CYANOCOBALAMIN
     Dosage: TAKES A SHOT EVERY MONTH
     Route: 065
  4. VITAMIN D [Concomitant]
     Active Substance: VITAMIN D NOS
     Dosage: UNKNOWN
     Route: 065

REACTIONS (16)
  - Malaise [Recovering/Resolving]
  - Fatigue [Recovering/Resolving]
  - Insomnia [Recovering/Resolving]
  - Burning sensation [Recovering/Resolving]
  - Pyrexia [Recovering/Resolving]
  - Asthenia [Recovering/Resolving]
  - Discomfort [Recovering/Resolving]
  - Malaise [Recovering/Resolving]
  - Inappropriate schedule of product administration [Unknown]
  - Off label use [Unknown]
  - Headache [Not Recovered/Not Resolved]
  - Nausea [Recovering/Resolving]
  - Arthralgia [Recovering/Resolving]
  - Constipation [Recovering/Resolving]
  - Abdominal pain upper [Recovering/Resolving]
  - Dyspnoea [Recovering/Resolving]

NARRATIVE: CASE EVENT DATE: 20210505
